FAERS Safety Report 22231610 (Version 1)
Quarter: 2023Q2

REPORT INFORMATION
  Report Type: Spontaneous
  Country: US (occurrence: None)
  Receive Date: 20230420
  Receipt Date: 20230420
  Transmission Date: 20230721
  Serious: No
  Sender: FDA-Public Use
  Company Number: 2023A076429

PATIENT
  Sex: Female
  Weight: 50.8 kg

DRUGS (1)
  1. SYMLIN [Suspect]
     Active Substance: PRAMLINTIDE ACETATE
     Indication: Type 1 diabetes mellitus
     Dosage: THREE TIMES A DAY
     Route: 058

REACTIONS (3)
  - Nausea [Unknown]
  - Lethargy [Unknown]
  - Drug ineffective [Unknown]
